FAERS Safety Report 6203459-2 (Version None)
Quarter: 2009Q2

REPORT INFORMATION
  Report Type: 
  Country: None (occurrence: None)
  Receive Date: 20090527
  Receipt Date: 20090519
  Transmission Date: 20091009
  Serious: Yes (Other)
  Sender: FDA-Public Use
  Company Number: US-ASTRAZENECA-2009UW07634

PATIENT
  Age: 50 Year
  Sex: Male
  Weight: 78 kg

DRUGS (20)
  1. SYMBICORT [Suspect]
     Indication: ASTHMA
     Dosage: 160/4.5, 2 PUFFS
     Route: 055
     Dates: start: 20090123, end: 20090201
  2. PULMICORT-100 [Concomitant]
     Dosage: 1MG/2ML USE Q 12 HOURS WITH NEBULIZING TREATMENTS AS DIRECTED
     Route: 055
  3. PULMICORT-100 [Concomitant]
     Dosage: 180MCG/ACT 2 INHALATIONS BID
     Route: 055
  4. TESSALON [Concomitant]
     Dosage: 1-2 PERLES  UP TO TID
     Route: 048
  5. EPIPEN [Concomitant]
     Indication: HYPERSENSITIVITY
     Dosage: 0.3 MG
  6. XOLAIR [Suspect]
     Dosage: 300 MG (2 INJECTIONS) EVERY 2 WEEKS
     Route: 058
  7. SPIRIVA [Concomitant]
     Dosage: 1-18 MCG CAPSULE THROUGH INHALER DEVICE DAILY
     Route: 055
  8. ALBUTEROL SULFATE AUTOHALER [Concomitant]
     Dosage: 2 PUFFS (Q4-5 HRS , PRN UP TO QID OR 15 MINUTES PRE-EXERCISE (108 MCG/ACT)
     Route: 055
  9. XOPENEX [Concomitant]
     Dosage: 1.25 MG/3ML NEBULIZER 1 AMPULE VIA NEBULIZER EVERY 4-6 HOURS AS NEEDED
     Route: 055
  10. MUCINEX [Concomitant]
  11. FEXOFENADINE [Concomitant]
     Route: 048
  12. DIOVAN [Concomitant]
     Route: 048
  13. PLAVIX [Concomitant]
     Route: 048
  14. OMEPRAZOLE [Concomitant]
     Route: 048
  15. ASPIRIN [Concomitant]
     Route: 048
  16. METOPROLOL [Concomitant]
     Route: 048
  17. PEAK FLOW METER [Concomitant]
     Dosage: USE DAILY AS DIRECTED
  18. PRAVASTATIN SODIUM [Concomitant]
     Route: 048
  19. PREDNISONE [Concomitant]
     Dosage: 20 MG TABLETS EACH MORNING 2-2-2 1-1-1 OFF
     Route: 048
  20. SINGULAIR [Concomitant]
     Route: 048

REACTIONS (13)
  - ABDOMINAL DISCOMFORT [None]
  - ABDOMINAL PAIN [None]
  - BACK PAIN [None]
  - CHEST PAIN [None]
  - CHILLS [None]
  - CORONARY ARTERY OCCLUSION [None]
  - DYSPHAGIA [None]
  - DYSPNOEA [None]
  - FLANK PAIN [None]
  - HEADACHE [None]
  - POLLAKIURIA [None]
  - THIRST [None]
  - URINE FLOW DECREASED [None]
